FAERS Safety Report 10516250 (Version 1)
Quarter: 2014Q4

REPORT INFORMATION
  Report Type: Spontaneous
  Country: US (occurrence: None)
  Receive Date: 20141010
  Receipt Date: 20141010
  Transmission Date: 20150528
  Serious: No
  Sender: FDA-Public Use
  Company Number: None

PATIENT
  Age: 65 Year
  Sex: Female
  Weight: 81.65 kg

DRUGS (2)
  1. ESTRADIOL/NORETHINDONE ACETATE ESTRADIOL (1.0 MG) AND NORETHINDRO BRECKINRIDEGE PHARMACEUTICALS INC. [Suspect]
     Active Substance: ESTRADIOL\NORETHINDRONE ACETATE
     Indication: HOT FLUSH
     Dosage: 1 PILL
     Route: 048
     Dates: start: 20140701, end: 20140831
  2. ESTRADIOL/NORETHINDONE ACETATE ESTRADIOL (1.0 MG) AND NORETHINDRO BRECKINRIDEGE PHARMACEUTICALS INC. [Suspect]
     Active Substance: ESTRADIOL\NORETHINDRONE ACETATE
     Dosage: 1 PILL
     Route: 048
     Dates: start: 20140701, end: 20140831

REACTIONS (3)
  - Product substitution issue [None]
  - Product quality issue [None]
  - Drug ineffective [None]

NARRATIVE: CASE EVENT DATE: 20140707
